FAERS Safety Report 4428911-1 (Version None)
Quarter: 2004Q3

REPORT INFORMATION
  Report Type: 
  Country: None (occurrence: None)
  Receive Date: 20040816
  Receipt Date: 20040730
  Transmission Date: 20050211
  Serious: Yes (Hospitalization)
  Sender: FDA-Public Use
  Company Number: 04P-163-0269635-00

PATIENT
  Age: 52 Year
  Sex: Male

DRUGS (13)
  1. NORVIR [Suspect]
     Indication: HIV INFECTION
     Dosage: 1 IN 1 D, PER ORAL
     Route: 048
     Dates: start: 20040610, end: 20040611
  2. NORVIR [Suspect]
     Indication: HIV INFECTION
     Dosage: 1 IN 1 D, PER ORAL
     Route: 048
     Dates: start: 20040617, end: 20040702
  3. NORVIR [Suspect]
     Indication: HIV INFECTION
     Dosage: 1 IN 1 D, PER ORAL
     Route: 048
     Dates: start: 20040706, end: 20040714
  4. NORVIR [Suspect]
     Indication: HIV INFECTION
     Dosage: 1 IN 1 D, PER ORAL
     Route: 048
     Dates: start: 20040716
  5. CLARITHROMYCIN [Suspect]
     Indication: MYCOBACTERIUM AVIUM COMPLEX INFECTION
     Dosage: PER ORAL
     Route: 048
     Dates: start: 19991020, end: 20040714
  6. CLARITHROMYCIN [Suspect]
     Indication: PROPHYLAXIS
     Dosage: PER ORAL
     Route: 048
     Dates: start: 19991020, end: 20040714
  7. VALGANCICLOVIR [Suspect]
     Indication: CYTOMEGALOVIRUS CHORIORETINITIS
     Dosage: PER ORAL
     Route: 048
     Dates: start: 20040602, end: 20040714
  8. ACYCLOVIR [Suspect]
     Indication: HERPES SIMPLEX
     Dosage: PER ORAL
     Route: 048
     Dates: start: 19970703, end: 20040714
  9. ACYCLOVIR [Suspect]
     Indication: PROPHYLAXIS
     Dosage: PER ORAL
     Route: 048
     Dates: start: 19970703, end: 20040714
  10. EMFUVIRTIDE [Concomitant]
  11. TENOFOVIR [Concomitant]
  12. LAMIVUDINE [Concomitant]
  13. TIPRANAVIR [Concomitant]

REACTIONS (4)
  - ASTHENIA [None]
  - CLOSTRIDIUM COLITIS [None]
  - CYTOMEGALOVIRUS CHORIORETINITIS [None]
  - HIV INFECTION [None]
